FAERS Safety Report 10784429 (Version 1)
Quarter: 2015Q1

REPORT INFORMATION
  Report Type: Spontaneous
  Country: US (occurrence: None)
  Receive Date: 20150209
  Receipt Date: 20150209
  Transmission Date: 20150721
  Serious: No
  Sender: FDA-Public Use
  Company Number: None

PATIENT
  Age: 24 Year
  Sex: Female
  Weight: 64.86 kg

DRUGS (3)
  1. MAKENA [Suspect]
     Active Substance: HYDROXYPROGESTERONE CAPROATE
     Indication: PREMATURE LABOUR
     Dosage: 1 INJECTION ONCE A WEEK INTO THE MUSCLE
     Route: 030
  2. FOLIC ACID. [Concomitant]
     Active Substance: FOLIC ACID
  3. PRENATAL VITAMINS [Concomitant]
     Active Substance: VITAMINS

REACTIONS (4)
  - Injection site pain [None]
  - Pruritus [None]
  - Headache [None]
  - Keloid scar [None]

NARRATIVE: CASE EVENT DATE: 20150206
